FAERS Safety Report 19649117 (Version 1)
Quarter: 2021Q3

REPORT INFORMATION
  Report Type: Spontaneous
  Country: GB (occurrence: GB)
  Receive Date: 20210802
  Receipt Date: 20210802
  Transmission Date: 20211014
  Serious: Yes (Hospitalization, Other)
  Sender: FDA-Public Use
  Company Number: GB-SANTEN INC-2021-GBR-007133

PATIENT
  Sex: Male

DRUGS (8)
  1. SOLIRIS [Suspect]
     Active Substance: ECULIZUMAB
     Dosage: 900 MG, Q2W
     Route: 065
     Dates: start: 20140508, end: 20180726
  2. TACROLIMUS. [Concomitant]
     Active Substance: TACROLIMUS
     Dosage: 1.2ML 2X DAILY
     Route: 065
  3. METHYLPREDNISOLONE. [Concomitant]
     Active Substance: METHYLPREDNISOLONE
     Indication: PRODUCT USED FOR UNKNOWN INDICATION
     Dosage: UNK
     Route: 065
  4. SOLIRIS [Suspect]
     Active Substance: ECULIZUMAB
     Indication: PAROXYSMAL NOCTURNAL HAEMOGLOBINURIA
     Dosage: 1200 MG, Q2W
     Route: 042
     Dates: start: 20180809
  5. SOLIRIS [Suspect]
     Active Substance: ECULIZUMAB
     Dosage: 600MG, WEEKLY
     Route: 065
     Dates: start: 20140411, end: 20140502
  6. PREDNISOLONE. [Concomitant]
     Active Substance: PREDNISOLONE
     Dosage: 30 MG, UNK
     Route: 065
  7. PREDNISOLONE. [Concomitant]
     Active Substance: PREDNISOLONE
     Dosage: 40 MG, UNK, IV STEROIDS
     Route: 048
  8. CICLOSPORIN (MANUFACTURER UNKNOWN) [Suspect]
     Active Substance: CYCLOSPORINE
     Dosage: UNK
     Route: 065

REACTIONS (17)
  - Aortic stenosis [Unknown]
  - Autoinflammatory disease [Unknown]
  - Decreased appetite [Not Recovered/Not Resolved]
  - Urinary retention [Unknown]
  - Urinary tract infection [Unknown]
  - Weight decreased [Not Recovered/Not Resolved]
  - Fatigue [Not Recovered/Not Resolved]
  - Illness [Not Recovered/Not Resolved]
  - Abdominal pain [Not Recovered/Not Resolved]
  - Nausea [Not Recovered/Not Resolved]
  - Mouth ulceration [Not Recovered/Not Resolved]
  - Dysuria [Not Recovered/Not Resolved]
  - Hypophagia [Not Recovered/Not Resolved]
  - Dyspnoea [Unknown]
  - Poor venous access [Unknown]
  - Transfusion [Unknown]
  - Odynophagia [Not Recovered/Not Resolved]

NARRATIVE: CASE EVENT DATE: 20210310
